FAERS Safety Report 4660648-6 (Version None)
Quarter: 2005Q2

REPORT INFORMATION
  Report Type: 
  Country: None (occurrence: None)
  Receive Date: 20050512
  Receipt Date: 20050504
  Transmission Date: 20051028
  Serious: Yes (Other)
  Sender: FDA-Public Use
  Company Number: PHNU2005DE01866

PATIENT
  Sex: Female
  Weight: 90 kg

DRUGS (1)
  1. ZOMETA [Suspect]
     Indication: MYELOFIBROSIS
     Dosage: UNKNOWN
     Dates: end: 20050301

REACTIONS (6)
  - IMPAIRED HEALING [None]
  - OEDEMA MUCOSAL [None]
  - OPEN WOUND [None]
  - PERIODONTITIS [None]
  - TOOTH EXTRACTION [None]
  - WOUND TREATMENT [None]
